FAERS Safety Report 10332171 (Version 1)
Quarter: 2014Q3

REPORT INFORMATION
  Report Type: Spontaneous
  Country: US (occurrence: None)
  Receive Date: 20140714
  Receipt Date: 20140714
  Transmission Date: 20150326
  Serious: Yes (Hospitalization)
  Sender: FDA-Public Use
  Company Number: GTI002400

PATIENT
  Age: 67 Year
  Sex: Female

DRUGS (26)
  1. BOSENTAN [Concomitant]
     Active Substance: BOSENTAN\BOSENTAN MONOHYDRATE
  2. METOPROLOL [Concomitant]
     Active Substance: METOPROLOL
  3. SPIRIVA [Concomitant]
     Active Substance: TIOTROPIUM BROMIDE MONOHYDRATE
  4. GLUCOGON [Concomitant]
  5. SYMBICORT [Concomitant]
     Active Substance: BUDESONIDE\FORMOTEROL FUMARATE DIHYDRATE
  6. CODEINE [Concomitant]
     Active Substance: CODEINE
  7. STREPTOMYCIN [Concomitant]
     Active Substance: STREPTOMYCIN\STREPTOMYCIN SULFATE
  8. PRAVASTATIN [Concomitant]
     Active Substance: PRAVASTATIN\PRAVASTATIN SODIUM
  9. PREGABALIN. [Concomitant]
     Active Substance: PREGABALIN
  10. CYCLOBENZAPRINE [Concomitant]
     Active Substance: CYCLOBENZAPRINE
  11. OXYTETRACYCLINE [Concomitant]
     Active Substance: OXYTETRACYCLINE
  12. HYDRALAZINE [Concomitant]
     Active Substance: HYDRALAZINE HYDROCHLORIDE
  13. ACE INHIBITORS [Concomitant]
     Active Substance: UNSPECIFIED INGREDIENT
  14. AMLODIPINE [Concomitant]
     Active Substance: AMLODIPINE BESYLATE
  15. EZETIMIBE. [Concomitant]
     Active Substance: EZETIMIBE
  16. DUONEB [Concomitant]
     Active Substance: ALBUTEROL SULFATE\IPRATROPIUM BROMIDE
  17. INSTA-GLUCOSE [Concomitant]
  18. SULFA/00046401/ [Concomitant]
  19. ESCITALOPRAM [Concomitant]
     Active Substance: ESCITALOPRAM OXALATE
  20. HUMULIN R [Concomitant]
     Active Substance: INSULIN HUMAN
  21. LEVEMIR [Concomitant]
     Active Substance: INSULIN DETEMIR
  22. LEVOTHYROXINE [Concomitant]
     Active Substance: LEVOTHYROXINE
  23. ERYTHROMYCIN. [Concomitant]
     Active Substance: ERYTHROMYCIN
  24. SILDENAFIL [Concomitant]
     Active Substance: SILDENAFIL
  25. PROLASTIN-C [Suspect]
     Active Substance: .ALPHA.1-PROTEINASE INHIBITOR HUMAN
     Indication: ALPHA-1 ANTI-TRYPSIN DEFICIENCY
     Route: 042
     Dates: start: 2013
  26. INDOMETHACIN. [Concomitant]
     Active Substance: INDOMETHACIN

REACTIONS (6)
  - Bacteraemia [None]
  - Fatigue [None]
  - Gout [None]
  - Pain in extremity [None]
  - Headache [None]
  - Tremor [None]

NARRATIVE: CASE EVENT DATE: 201406
